FAERS Safety Report 9357948 (Version 3)
Quarter: 2014Q4

REPORT INFORMATION
  Report Type: Report from Study
  Country: DE (occurrence: DE)
  Receive Date: 20130620
  Receipt Date: 20141212
  Transmission Date: 20150529
  Serious: Yes (Hospitalization)
  Sender: FDA-Public Use
  Company Number: DE-ROCHE-1235995

PATIENT
  Age: 63 Year
  Sex: Female
  Weight: 85 kg

DRUGS (10)
  1. CANDESARTAN CILEXETIL. [Concomitant]
     Active Substance: CANDESARTAN CILEXETIL
     Route: 065
     Dates: start: 20121212
  2. AMLODIPINE [Concomitant]
     Active Substance: AMLODIPINE BESYLATE
     Route: 065
     Dates: start: 20121108
  3. ALLOPURINOL. [Concomitant]
     Active Substance: ALLOPURINOL
     Route: 065
     Dates: start: 20121108
  4. METHOXY POLYETHYLENE GLYCOL-EPOETIN BETA [Suspect]
     Active Substance: PEGZEREPOETIN ALFA
     Indication: NEPHROGENIC ANAEMIA
     Route: 065
     Dates: start: 20130318, end: 20130511
  5. NEBIVOLOL [Concomitant]
     Active Substance: NEBIVOLOL
     Route: 065
     Dates: start: 20121108
  6. SIMVASTATIN. [Concomitant]
     Active Substance: SIMVASTATIN
     Route: 065
     Dates: start: 20121212
  7. DOXAZOSIN [Concomitant]
     Active Substance: DOXAZOSIN\DOXAZOSIN MESYLATE
     Route: 065
     Dates: start: 20130211
  8. ACETYLSALICYLSAURE [Concomitant]
     Indication: PRODUCT USED FOR UNKNOWN INDICATION
     Route: 065
     Dates: start: 20121108
  9. HUMAN INSULIN [Concomitant]
     Active Substance: INSULIN HUMAN
     Route: 065
     Dates: start: 20121108
  10. LEVOTHYROXIN NATRIUM [Concomitant]
     Route: 065
     Dates: start: 20121212

REACTIONS (1)
  - Transient global amnesia [Unknown]

NARRATIVE: CASE EVENT DATE: 20130525
